FAERS Safety Report 6506866-3 (Version None)
Quarter: 2009Q4

REPORT INFORMATION
  Report Type: 
  Country: None (occurrence: None)
  Receive Date: 20091221
  Receipt Date: 20091211
  Transmission Date: 20100525
  Serious: Yes (Other)
  Sender: FDA-Public Use
  Company Number: US-SANOFI-AVENTIS-2009SA008503

PATIENT
  Age: 68 Year
  Sex: Female

DRUGS (2)
  1. MULTAQ [Suspect]
     Route: 048
     Dates: start: 20091202, end: 20091211
  2. AMIODARONE [Concomitant]
     Dates: start: 20080501, end: 20091127

REACTIONS (5)
  - BRAIN NATRIURETIC PEPTIDE INCREASED [None]
  - CARDIAC FAILURE CONGESTIVE [None]
  - CHEST X-RAY ABNORMAL [None]
  - DYSPNOEA [None]
  - OEDEMA [None]
